FAERS Safety Report 25945868 (Version 1)
Quarter: 2025Q4

REPORT INFORMATION
  Report Type: Spontaneous
  Country: JP (occurrence: JP)
  Receive Date: 20251021
  Receipt Date: 20251021
  Transmission Date: 20260117
  Serious: Yes (Other)
  Sender: MERCK SHARP & DOHME LLC
  Company Number: JP-009507513-2341408

PATIENT
  Age: 50 Year
  Sex: Female

DRUGS (2)
  1. PEMBROLIZUMAB [Suspect]
     Active Substance: PEMBROLIZUMAB
     Indication: Female reproductive neoplasm
     Dates: start: 202505
  2. CISPLATIN [Suspect]
     Active Substance: CISPLATIN
     Indication: Female reproductive neoplasm
     Dates: start: 202505

REACTIONS (3)
  - Febrile neutropenia [Unknown]
  - Blood sodium decreased [Unknown]
  - Hepatic function abnormal [Unknown]

NARRATIVE: CASE EVENT DATE: 20250101
